FAERS Safety Report 15832823 (Version 1)
Quarter: 2019Q1

REPORT INFORMATION
  Report Type: Report from Study
  Country: None (occurrence: US)
  Receive Date: 20190116
  Receipt Date: 20190116
  Transmission Date: 20190417
  Serious: Yes (Other)
  Sender: FDA-Public Use
  Company Number: US-ABBVIE-18K-163-2601361-00

PATIENT
  Age: 73 Year
  Sex: Female

DRUGS (3)
  1. HUMIRA [Suspect]
     Active Substance: ADALIMUMAB
     Indication: RHEUMATOID ARTHRITIS
     Route: 058
     Dates: start: 201705
  2. HUMIRA [Suspect]
     Active Substance: ADALIMUMAB
     Route: 058
     Dates: start: 201806
  3. CORTISONE [Concomitant]
     Active Substance: CORTISONE\HYDROCORTISONE
     Indication: PRODUCT USED FOR UNKNOWN INDICATION

REACTIONS (8)
  - Knee arthroplasty [Unknown]
  - Peripheral swelling [Unknown]
  - Haemoglobin abnormal [Unknown]
  - Urinary tract infection [Unknown]
  - Gait disturbance [Unknown]
  - Cellulitis [Unknown]
  - Rheumatoid arthritis [Unknown]
  - Procedural complication [Unknown]

NARRATIVE: CASE EVENT DATE: 2018
